FAERS Safety Report 10345576 (Version 1)
Quarter: 2014Q3

REPORT INFORMATION
  Report Type: Spontaneous
  Country: US (occurrence: US)
  Receive Date: 20140728
  Receipt Date: 20140728
  Transmission Date: 20150326
  Serious: Yes (Other)
  Sender: FDA-Public Use
  Company Number: US-PFIZER INC-2014206373

PATIENT
  Age: 46 Year
  Sex: Female
  Weight: 92.52 kg

DRUGS (4)
  1. NORPACE [Suspect]
     Active Substance: DISOPYRAMIDE PHOSPHATE
     Indication: HEART RATE IRREGULAR
     Dosage: 100 MG, 1X/DAY
     Route: 048
  2. MIDODRINE [Concomitant]
     Active Substance: MIDODRINE
     Indication: HYPERTENSION
     Dosage: 10 MG (TWO TABLETS OF 5MG), 3X/DAY
  3. NORPACE [Suspect]
     Active Substance: DISOPYRAMIDE PHOSPHATE
     Dosage: 100 MG, 2X/DAY
     Route: 048
     Dates: start: 1991
  4. ACEBUTOLOL [Concomitant]
     Active Substance: ACEBUTOLOL
     Indication: HYPERTENSION
     Dosage: 200 MG, UNK

REACTIONS (4)
  - Heart rate irregular [Unknown]
  - Drug dose omission [Unknown]
  - Loss of consciousness [Unknown]
  - Malaise [Unknown]
